FAERS Safety Report 20685399 (Version 1)
Quarter: 2022Q2

REPORT INFORMATION
  Report Type: Spontaneous
  Country: US (occurrence: US)
  Receive Date: 20220407
  Receipt Date: 20220407
  Transmission Date: 20220720
  Serious: No
  Sender: FDA-Public Use
  Company Number: US-PFIZER INC-202101333971

PATIENT
  Age: 59 Year
  Sex: Male
  Weight: 106.58 kg

DRUGS (7)
  1. INLYTA [Suspect]
     Active Substance: AXITINIB
     Indication: Renal cell carcinoma
     Dosage: 5 MG, 2X/DAY
     Route: 048
     Dates: start: 20210701
  2. BACLOFEN [Concomitant]
     Active Substance: BACLOFEN
  3. MORNIFLUMATE [Concomitant]
     Active Substance: MORNIFLUMATE
  4. GABAPENTIN [Concomitant]
     Active Substance: GABAPENTIN
  5. MIRALAX [Concomitant]
     Active Substance: POLYETHYLENE GLYCOL 3350
  6. SENNA S [Concomitant]
     Active Substance: DOCUSATE SODIUM\SENNA LEAF
  7. VITAMIN D3 [Concomitant]
     Active Substance: CHOLECALCIFEROL

REACTIONS (1)
  - Rash macular [Unknown]
